FAERS Safety Report 18425556 (Version 1)
Quarter: 2020Q4

REPORT INFORMATION
  Report Type: Spontaneous
  Country: US (occurrence: US)
  Receive Date: 20201024
  Receipt Date: 20201024
  Transmission Date: 20210114
  Serious: Yes (Life-Threatening)
  Sender: FDA-Public Use
  Company Number: None

PATIENT
  Age: 55 Year
  Sex: Female
  Weight: 80.55 kg

DRUGS (6)
  1. ALBUTEROL SULFATE INHALATION [Suspect]
     Active Substance: ALBUTEROL SULFATE
     Indication: CHRONIC OBSTRUCTIVE PULMONARY DISEASE
     Dosage: ?          OTHER STRENGTH:112;QUANTITY:2 PUFF(S);?
     Route: 055
  2. ADVAIR HFA [Concomitant]
     Active Substance: FLUTICASONE PROPIONATE\SALMETEROL XINAFOATE
  3. RESTASIS [Concomitant]
     Active Substance: CYCLOSPORINE
  4. LISINOPRIL. [Concomitant]
     Active Substance: LISINOPRIL
  5. ALBUTEROL SULFATE INHALATION [Suspect]
     Active Substance: ALBUTEROL SULFATE
     Indication: ASTHMA
     Dosage: ?          OTHER STRENGTH:112;QUANTITY:2 PUFF(S);?
     Route: 055
  6. PROZAC [Concomitant]
     Active Substance: FLUOXETINE HYDROCHLORIDE

REACTIONS (4)
  - Device malfunction [None]
  - Fall [None]
  - Asthenia [None]
  - Head injury [None]

NARRATIVE: CASE EVENT DATE: 20200829
